FAERS Safety Report 13274131 (Version 1)
Quarter: 2017Q1

REPORT INFORMATION
  Report Type: Spontaneous
  Country: FR (occurrence: FR)
  Receive Date: 20170227
  Receipt Date: 20170227
  Transmission Date: 20170428
  Serious: Yes (Life-Threatening)
  Sender: FDA-Public Use
  Company Number: FR-SA-2017SA032755

PATIENT
  Age: 83 Year
  Sex: Female

DRUGS (10)
  1. SERETIDE [Concomitant]
     Active Substance: FLUTICASONE PROPIONATE\SALMETEROL XINAFOATE
     Route: 065
  2. LYRICA [Concomitant]
     Active Substance: PREGABALIN
     Route: 065
  3. BIPRETERAX [Concomitant]
     Active Substance: INDAPAMIDE\PERINDOPRIL
     Route: 065
  4. TRAMADOL. [Suspect]
     Active Substance: TRAMADOL
     Indication: PAIN
     Route: 048
     Dates: start: 20170103
  5. LEXOMIL [Suspect]
     Active Substance: BROMAZEPAM
     Indication: ANXIETY
     Dosage: LEXOMIL ROCHE CAPLET SHAPED TABLET , QUADRISECTED TABLET
     Route: 048
  6. XARELTO [Concomitant]
     Active Substance: RIVAROXABAN
     Route: 065
  7. LEVOTHYROX [Concomitant]
     Active Substance: LEVOTHYROXINE
     Dosage: FORM: COMPRIME SECABLE
     Route: 065
  8. STILNOX [Suspect]
     Active Substance: ZOLPIDEM TARTRATE
     Indication: INSOMNIA
     Dosage: FORM: FILM COATED DIVISIBLE TABLET
     Route: 048
  9. AMIODARONE [Concomitant]
     Active Substance: AMIODARONE
     Route: 065
  10. EUPRESSYL [Concomitant]
     Active Substance: URAPIDIL
     Route: 065

REACTIONS (3)
  - Coma [Recovered/Resolved]
  - Acute respiratory failure [Recovered/Resolved]
  - Miosis [Recovered/Resolved]

NARRATIVE: CASE EVENT DATE: 20170107
